FAERS Safety Report 19215549 (Version 2)
Quarter: 2021Q2

REPORT INFORMATION
  Report Type: Spontaneous
  Country: US (occurrence: US)
  Receive Date: 20210504
  Receipt Date: 20210510
  Transmission Date: 20210717
  Serious: No
  Sender: FDA-Public Use
  Company Number: CA-BRISTOL-MYERS SQUIBB COMPANY-BMS-2021-042405

PATIENT
  Age: 59 Year
  Sex: Male

DRUGS (2)
  1. SPRYCEL [Suspect]
     Active Substance: DASATINIB
     Dosage: 80 MILLIGRAM, QD
     Route: 048
     Dates: start: 202009
  2. SPRYCEL [Suspect]
     Active Substance: DASATINIB
     Indication: CHRONIC MYELOID LEUKAEMIA
     Dosage: 80 MILLIGRAM, QD
     Route: 048
     Dates: start: 202008

REACTIONS (2)
  - Skin disorder [Unknown]
  - Neck mass [Unknown]
